FAERS Safety Report 6102495-4 (Version None)
Quarter: 2009Q1

REPORT INFORMATION
  Report Type: 
  Country: None (occurrence: None)
  Receive Date: 20090224
  Receipt Date: 20090205
  Transmission Date: 20090719
  Serious: Yes (Death)
  Sender: FDA-Public Use
  Company Number: GAM-017-09-FR

PATIENT
  Age: 31 Year
  Sex: Male

DRUGS (10)
  1. IMMUNE GLOBULIN (HUMAN) [Suspect]
     Indication: HEART TRANSPLANT REJECTION
     Dosage: 30 G  I.V.
     Route: 042
     Dates: start: 20090106, end: 20090107
  2. PROGRAF [Suspect]
     Indication: DRUG USE FOR UNKNOWN INDICATION
     Dosage: 4 MG P.O.
     Route: 048
  3. CELLCEPT [Suspect]
     Indication: DRUG USE FOR UNKNOWN INDICATION
     Dosage: 2 MG P.O.
     Route: 048
     Dates: end: 20090107
  4. PREDNISONE [Suspect]
     Indication: DRUG USE FOR UNKNOWN INDICATION
     Dosage: 10 MG P.O.
     Route: 048
     Dates: end: 20090107
  5. PLAVIX [Suspect]
     Indication: DRUG USE FOR UNKNOWN INDICATION
     Dosage: 75 MG P.O.
     Route: 048
     Dates: end: 20090107
  6. BACTRIM [Suspect]
     Indication: DRUG USE FOR UNKNOWN INDICATION
     Dosage: 1DF P.O.
     Route: 048
     Dates: start: 20090106, end: 20090107
  7. BISOPROLOL FUMARATE [Concomitant]
  8. ASPIRIN [Concomitant]
  9. RAMIPRIL [Concomitant]
  10. PRAVASTATIN [Concomitant]

REACTIONS (8)
  - CARDIAC ARREST [None]
  - CARDIO-RESPIRATORY ARREST [None]
  - CONVULSION [None]
  - MALAISE [None]
  - NAUSEA [None]
  - PULMONARY EMBOLISM [None]
  - VENTRICULAR FIBRILLATION [None]
  - VOMITING [None]
